FAERS Safety Report 25957771 (Version 2)
Quarter: 2025Q4

REPORT INFORMATION
  Report Type: Spontaneous
  Country: US (occurrence: US)
  Receive Date: 20251024
  Receipt Date: 20251104
  Transmission Date: 20260117
  Serious: Yes (Other)
  Sender: CSL BEHRING
  Company Number: US-BEH-2025222054

PATIENT
  Sex: Female

DRUGS (2)
  1. HIZENTRA [Suspect]
     Active Substance: HUMAN IMMUNOGLOBULIN G
     Indication: Immunodeficiency common variable
     Dosage: 4 G, EVERY 6 DAYS
     Route: 058
     Dates: start: 202208
  2. HIZENTRA [Suspect]
     Active Substance: HUMAN IMMUNOGLOBULIN G
     Indication: Hypogammaglobulinaemia
     Dosage: 4 G, EVERY 6 DAYS
     Route: 058
     Dates: start: 202208

REACTIONS (9)
  - Diverticulitis [Unknown]
  - Gastrointestinal disorder [Unknown]
  - Constipation [Unknown]
  - Diarrhoea [Unknown]
  - Abdominal discomfort [Unknown]
  - Sinusitis [Unknown]
  - Ear pain [Unknown]
  - Upper-airway cough syndrome [Unknown]
  - Visual impairment [Unknown]
